FAERS Safety Report 8402640-1 (Version None)
Quarter: 2012Q2

REPORT INFORMATION
  Report Type: 
  Country: None (occurrence: None)
  Receive Date: 20120601
  Receipt Date: 20120527
  Transmission Date: 20120825
  Serious: Yes (Hospitalization, Disabling, Other)
  Sender: FDA-Public Use
  Company Number: DE-ROCHE-750671

PATIENT
  Age: 41 Year
  Sex: Female
  Weight: 87 kg

DRUGS (7)
  1. ACTEMRA [Suspect]
     Route: 042
  2. ACTEMRA [Suspect]
     Route: 042
  3. PREDNISOLONE [Suspect]
     Indication: RHEUMATOID ARTHRITIS
     Dosage: FREQUENCY:TGL
     Route: 048
     Dates: start: 20070925
  4. ACTEMRA [Suspect]
     Route: 042
  5. ACTEMRA [Suspect]
     Route: 042
  6. MORPHINE [Concomitant]
     Route: 048
  7. ACTEMRA [Suspect]
     Indication: RHEUMATOID ARTHRITIS
     Route: 042

REACTIONS (4)
  - DYSPNOEA [None]
  - PNEUMONIA PRIMARY ATYPICAL [None]
  - POSTOPERATIVE ABSCESS [None]
  - IMPAIRED HEALING [None]
